FAERS Safety Report 22175227 (Version 2)
Quarter: 2023Q2

REPORT INFORMATION
  Report Type: Spontaneous
  Country: US (occurrence: US)
  Receive Date: 20230405
  Receipt Date: 20230609
  Transmission Date: 20230722
  Serious: Yes (Hospitalization, Other)
  Sender: FDA-Public Use
  Company Number: US-MACLEODS PHARMACEUTICALS US LTD-MAC2023040598

PATIENT

DRUGS (7)
  1. LEVOFLOXACIN [Suspect]
     Active Substance: LEVOFLOXACIN
     Indication: Cough
     Dosage: 500 MILLIGRAM (INTERMITTENT 5-DAY COURSES)
     Route: 065
  2. LEVOFLOXACIN [Suspect]
     Active Substance: LEVOFLOXACIN
     Indication: Antibiotic therapy
  3. PREDNISONE [Suspect]
     Active Substance: PREDNISONE
     Indication: Cough
     Dosage: 40 MILLIGRAM (2.5-MONTH COURSE OF ORAL PREDNISONE (20?40MG)
     Route: 048
  4. PREDNISONE [Suspect]
     Active Substance: PREDNISONE
     Dosage: 20 MILLIGRAM (2.5-MONTH COURSE OF ORAL PREDNISONE (20?40MG))
     Route: 048
  5. PROBIOTICS NOS [Suspect]
     Active Substance: PROBIOTICS NOS
     Indication: Colitis ulcerative
     Dosage: 550 MILLIGRAM, QD
     Route: 065
  6. PROBIOTICS NOS [Suspect]
     Active Substance: PROBIOTICS NOS
     Indication: Probiotic therapy
  7. BALSALAZIDE [Concomitant]
     Active Substance: BALSALAZIDE
     Indication: Colitis ulcerative
     Dosage: 750 MILLIGRAM, BID (TWO TIMES A DAY 750MG)
     Route: 065

REACTIONS (9)
  - Subacute endocarditis [Recovered/Resolved]
  - Bacterial translocation [Recovered/Resolved]
  - Lactobacillus bacteraemia [Recovered/Resolved]
  - Prosthetic valve endocarditis [Recovered/Resolved]
  - Septic cerebral embolism [Recovered/Resolved]
  - Gastrointestinal bacterial infection [Recovered/Resolved]
  - Septic shock [Recovered/Resolved]
  - Endocarditis bacterial [Unknown]
  - Bacterial sepsis [Unknown]
